FAERS Safety Report 11804805 (Version 2)
Quarter: 2016Q4

REPORT INFORMATION
  Report Type: Spontaneous
  Country: US (occurrence: US)
  Receive Date: 20151205
  Receipt Date: 20161222
  Transmission Date: 20170206
  Serious: No
  Sender: FDA-Public Use
  Company Number: US-BAUSCH-BL-2014-008303

PATIENT
  Age: 58 Year
  Sex: Female

DRUGS (1)
  1. XENAZINE [Suspect]
     Active Substance: TETRABENAZINE
     Indication: TORTICOLLIS
     Route: 048
     Dates: start: 20140918

REACTIONS (5)
  - Condition aggravated [Unknown]
  - Off label use [Not Recovered/Not Resolved]
  - Mood altered [Unknown]
  - Depression [Unknown]
  - Thirst [Unknown]

NARRATIVE: CASE EVENT DATE: 20140918
